FAERS Safety Report 19874888 (Version 1)
Quarter: 2021Q3

REPORT INFORMATION
  Report Type: Spontaneous
  Country: AU (occurrence: AU)
  Receive Date: 20210923
  Receipt Date: 20210923
  Transmission Date: 20211014
  Serious: Yes (Other)
  Sender: FDA-Public Use
  Company Number: AU-ASTRAZENECA-2021A727629

PATIENT
  Sex: Male

DRUGS (2)
  1. FASENRA [Concomitant]
     Active Substance: BENRALIZUMAB
     Indication: ASTHMA
     Route: 057
  2. FASENRA [Suspect]
     Active Substance: BENRALIZUMAB
     Indication: ASTHMA
     Route: 058

REACTIONS (1)
  - Alopecia [Not Recovered/Not Resolved]
